FAERS Safety Report 5315588-6 (Version None)
Quarter: 2007Q2

REPORT INFORMATION
  Report Type: 
  Country: None (occurrence: None)
  Receive Date: 20070427
  Receipt Date: 20070413
  Transmission Date: 20071010
  Serious: Yes (Hospitalization)
  Sender: FDA-Public Use
  Company Number: MEDI-0005740

PATIENT
  Sex: Female

DRUGS (2)
  1. ETHYOL [Suspect]
     Indication: PROPHYLAXIS
     Dosage: SUBCUTANEOUS
     Route: 058
  2. RADIATION THERAPY [Concomitant]

REACTIONS (5)
  - MUCOSAL INFLAMMATION [None]
  - PNEUMOTHORAX [None]
  - RESPIRATORY ARREST [None]
  - SKIN TOXICITY [None]
  - WEIGHT DECREASED [None]
